FAERS Safety Report 22795343 (Version 4)
Quarter: 2024Q1

REPORT INFORMATION
  Report Type: Report from Study
  Country: US (occurrence: US)
  Receive Date: 20230807
  Receipt Date: 20240112
  Transmission Date: 20240410
  Serious: Yes (Hospitalization)
  Sender: FDA-Public Use
  Company Number: US-002147023-NVSC2023US171830

PATIENT
  Sex: Male

DRUGS (1)
  1. ENTRESTO [Suspect]
     Active Substance: SACUBITRIL\VALSARTAN
     Indication: Product used for unknown indication
     Dosage: UNK
     Route: 065

REACTIONS (7)
  - Cardiac failure [Unknown]
  - Dyspnoea [Recovered/Resolved]
  - Insomnia [Unknown]
  - Decreased appetite [Unknown]
  - Rhinorrhoea [Unknown]
  - Fatigue [Unknown]
  - Product dose omission issue [Unknown]
